FAERS Safety Report 6800841-7 (Version None)
Quarter: 2010Q2

REPORT INFORMATION
  Report Type: 
  Country: None (occurrence: None)
  Receive Date: 20100629
  Receipt Date: 20100624
  Transmission Date: 20101027
  Serious: Yes (Other)
  Sender: FDA-Public Use
  Company Number: IN-BRISTOL-MYERS SQUIBB COMPANY-15152531

PATIENT
  Age: 39 Year
  Sex: Female

DRUGS (1)
  1. IXEMPRA KIT [Suspect]
     Indication: BREAST CANCER METASTATIC
     Route: 042
     Dates: start: 20100507, end: 20100507

REACTIONS (1)
  - MALIGNANT NEOPLASM PROGRESSION [None]
